FAERS Safety Report 20331445 (Version 1)
Quarter: 2022Q1

REPORT INFORMATION
  Report Type: Spontaneous
  Country: US (occurrence: None)
  Receive Date: 20220112
  Receipt Date: 20220112
  Transmission Date: 20220423
  Serious: No
  Sender: FDA-Public Use
  Company Number: None

PATIENT
  Sex: Male

DRUGS (1)
  1. SPRAVATO [Suspect]
     Active Substance: ESKETAMINE
     Indication: Depression
     Dosage: FREQUENCY : TWICE A WEEK;?
     Route: 045
     Dates: start: 20220107

REACTIONS (2)
  - Dissociation [None]
  - Feeling abnormal [None]
